FAERS Safety Report 10288535 (Version 2)
Quarter: 2014Q3

REPORT INFORMATION
  Report Type: Spontaneous
  Country: GR (occurrence: GR)
  Receive Date: 20140709
  Receipt Date: 20140815
  Transmission Date: 20150326
  Serious: Yes (Other)
  Sender: FDA-Public Use
  Company Number: GR-PFIZER INC-2014188714

PATIENT
  Age: 80 Year
  Sex: Male

DRUGS (6)
  1. EFFEXOR XR [Suspect]
     Active Substance: VENLAFAXINE HYDROCHLORIDE
     Indication: STRESS
     Dosage: 75 MG, 1X/DAY
     Route: 048
     Dates: start: 20140517, end: 2014
  2. EFFEXOR XR [Suspect]
     Active Substance: VENLAFAXINE HYDROCHLORIDE
     Dosage: 37.5 MG, 2X/DAY
     Dates: start: 2014
  3. EXELON [Concomitant]
     Active Substance: RIVASTIGMINE TARTRATE
     Dosage: UNK
  4. ALOPERIDIN [Concomitant]
     Dosage: UNK
  5. APROVEL [Concomitant]
     Active Substance: IRBESARTAN
     Dosage: UNK
  6. LOBIVON [Concomitant]
     Active Substance: NEBIVOLOL HYDROCHLORIDE
     Dosage: UNK

REACTIONS (4)
  - Tachypnoea [Not Recovered/Not Resolved]
  - Aggression [Recovering/Resolving]
  - Dyspnoea [Not Recovered/Not Resolved]
  - Restlessness [Recovering/Resolving]

NARRATIVE: CASE EVENT DATE: 201405
